FAERS Safety Report 6712719-8 (Version None)
Quarter: 2010Q2

REPORT INFORMATION
  Report Type: 
  Country: None (occurrence: None)
  Receive Date: 20100506
  Receipt Date: 20100422
  Transmission Date: 20101027
  Serious: Yes (Death)
  Sender: FDA-Public Use
  Company Number: FR-RANBAXY-2010RR-33473

PATIENT
  Sex: Female

DRUGS (9)
  1. FLUCONAZOLE [Suspect]
     Indication: PROPHYLAXIS
     Dosage: UNK
     Dates: start: 20011022, end: 20011031
  2. FLUCONAZOLE [Suspect]
     Dosage: UNK
     Dates: start: 20011012, end: 20011124
  3. FLUCONAZOLE [Suspect]
     Dosage: UNK
     Route: 042
     Dates: end: 20020314
  4. FLUCYTOSINE [Suspect]
     Dosage: UNK
     Route: 042
     Dates: end: 20020314
  5. CASPOFUNGIN [Suspect]
     Dosage: UNK
     Dates: start: 20020112, end: 20020314
  6. VORICONAZOLE [Suspect]
     Dosage: UNK
     Route: 042
     Dates: start: 20011221, end: 20020314
  7. AMPHOTERICIN B [Concomitant]
     Dosage: UNK
     Dates: start: 20011101, end: 20011112
  8. AMPHOTERICIN B [Concomitant]
     Dosage: UNK
     Dates: start: 20011124, end: 20011210
  9. AMPHOTERICIN B [Concomitant]
     Dosage: UNK
     Dates: end: 20020112

REACTIONS (1)
  - DRUG RESISTANCE [None]
